FAERS Safety Report 5115293-5 (Version None)
Quarter: 2006Q3

REPORT INFORMATION
  Report Type: 
  Country: None (occurrence: None)
  Receive Date: 20060922
  Receipt Date: 20060912
  Transmission Date: 20061208
  Serious: Yes (Hospitalization)
  Sender: FDA-Public Use
  Company Number: 2006RR-03706

PATIENT
  Age: 77 Year
  Sex: Female

DRUGS (8)
  1. FLUCONAZOLE [Suspect]
     Dosage: 50 MG, QD; ORAL
     Route: 048
     Dates: start: 20060704, end: 20060713
  2. METRONIDAZOLE [Suspect]
     Dosage: 400 MG, BID; ORAL
     Route: 048
     Dates: start: 20060707, end: 20060713
  3. TAZOCIN (PIPERACILLIN SODIUM) [Suspect]
     Dosage: INTRAVENOUS
     Route: 042
     Dates: end: 20060713
  4. TAZOCIN (TAZOBACTUM SODIUM) UNKNOWN [Suspect]
     Dosage: INTRAVENOUS
     Route: 042
     Dates: end: 20060713
  5. ACETYLCYSTEINE [Concomitant]
  6. AMLODIPINE [Concomitant]
  7. CODEINE FAMILY (CODEINE PHOSPHATE) TABLET [Concomitant]
  8. PARACETAMOL [Concomitant]

REACTIONS (1)
  - LIVER FUNCTION TEST ABNORMAL [None]
